FAERS Safety Report 17226257 (Version 1)
Quarter: 2020Q1

REPORT INFORMATION
  Report Type: Spontaneous
  Country: US (occurrence: US)
  Receive Date: 20200102
  Receipt Date: 20200102
  Transmission Date: 20200409
  Serious: No
  Sender: FDA-Public Use
  Company Number: US-FOUNDATIONCONSUMERHC-2019-US-019706

PATIENT
  Age: 22 Year
  Sex: Female

DRUGS (2)
  1. UNSPECIFIED MEDICAITON FOR SOMACH ACHE [Concomitant]
  2. PLAN B ONE-STEP [Suspect]
     Active Substance: LEVONORGESTREL
     Indication: POST COITAL CONTRACEPTION
     Dosage: 1.5 MG X 1 DOSE
     Route: 048
     Dates: start: 20191012, end: 20191012

REACTIONS (4)
  - Dysmenorrhoea [Unknown]
  - Vaginal haemorrhage [Not Recovered/Not Resolved]
  - Menstruation delayed [Unknown]
  - Vaginal haemorrhage [Recovered/Resolved]

NARRATIVE: CASE EVENT DATE: 20191012
